FAERS Safety Report 21475121 (Version 3)
Quarter: 2022Q4

REPORT INFORMATION
  Report Type: Other
  Country: DE (occurrence: None)
  Receive Date: 20221019
  Receipt Date: 20221213
  Transmission Date: 20230112
  Serious: Yes (Hospitalization)
  Sender: FDA-Public Use
  Company Number: DE-ROCHE-3159749

PATIENT
  Age: 55 Year
  Sex: Female

DRUGS (3)
  1. OCREVUS [Suspect]
     Active Substance: OCRELIZUMAB
     Indication: Relapsing-remitting multiple sclerosis
     Route: 042
     Dates: start: 20200123
  2. CORTISONE [Concomitant]
     Active Substance: CORTISONE
  3. NABIXIMOLS [Concomitant]
     Active Substance: NABIXIMOLS

REACTIONS (3)
  - Sacroiliitis [Not Recovered/Not Resolved]
  - COVID-19 [Recovered/Resolved]
  - Cyst [Recovering/Resolving]

NARRATIVE: CASE EVENT DATE: 20220601
